FAERS Safety Report 9540230 (Version 1)
Quarter: 2013Q3

REPORT INFORMATION
  Report Type: Spontaneous
  Country: US (occurrence: US)
  Receive Date: 20130920
  Receipt Date: 20130920
  Transmission Date: 20140515
  Serious: Yes (Other)
  Sender: FDA-Public Use
  Company Number: US-ELI_LILLY_AND_COMPANY-US201309004189

PATIENT
  Age: 55 Year
  Sex: Male

DRUGS (2)
  1. EFFIENT [Suspect]
     Dosage: 60 MG, UNK / LOADING DOSE
     Dates: start: 20120828
  2. EFFIENT [Suspect]
     Dosage: 10 MG, QD

REACTIONS (1)
  - Vascular pseudoaneurysm [Recovered/Resolved]
